FAERS Safety Report 7231071-5 (Version None)
Quarter: 2011Q1

REPORT INFORMATION
  Report Type: 
  Country: None (occurrence: None)
  Receive Date: 20110118
  Receipt Date: 20110112
  Transmission Date: 20110831
  Serious: Yes (Hospitalization)
  Sender: FDA-Public Use
  Company Number: SE-ROCHE-752762

PATIENT
  Sex: Female

DRUGS (7)
  1. XENICAL [Suspect]
     Indication: OVERWEIGHT
     Dosage: DOSE REPORTED AS 120MG X 3.
     Route: 048
     Dates: start: 20090901, end: 20100101
  2. ALVEDON [Concomitant]
  3. TROMBYL [Concomitant]
     Dates: start: 20100301
  4. APROVEL [Concomitant]
     Dates: start: 20100301
  5. AMLODIPINE [Concomitant]
     Dates: start: 20100301
  6. XENICAL [Suspect]
     Dosage: THERAPY AGAIN DISCONTINUED.
     Route: 048
  7. METOPROLOL [Concomitant]
     Dates: start: 20100301

REACTIONS (5)
  - BLOOD GLUCOSE DECREASED [None]
  - MYOCARDIAL INFARCTION [None]
  - HAEMOGLOBIN DECREASED [None]
  - HYPERTENSION [None]
  - DIARRHOEA [None]
